FAERS Safety Report 6647926-6 (Version None)
Quarter: 2010Q1

REPORT INFORMATION
  Report Type: 
  Country: None (occurrence: None)
  Receive Date: 20100318
  Receipt Date: 20100304
  Transmission Date: 20100710
  Serious: Yes (Congenital Anomaly)
  Sender: FDA-Public Use
  Company Number: 008762

PATIENT

DRUGS (1)
  1. KEPPRA [Suspect]
     Dosage: (TRANSPLACENTAL)
     Route: 064

REACTIONS (3)
  - ABORTION INDUCED [None]
  - DIAPHRAGMATIC HERNIA [None]
  - DRUG EXPOSURE DURING PREGNANCY [None]
